FAERS Safety Report 11651570 (Version 1)
Quarter: 2015Q4

REPORT INFORMATION
  Report Type: Spontaneous
  Country: US (occurrence: None)
  Receive Date: 20151021
  Receipt Date: 20151021
  Transmission Date: 20160304
  Serious: Yes (Other)
  Sender: FDA-Public Use
  Company Number: None

PATIENT
  Age: 35 Year
  Sex: Male
  Weight: 68.04 kg

DRUGS (4)
  1. GARDEN OF LIFE RAW PROBIOTIC [Concomitant]
  2. GNC MULTIVITAMIN [Concomitant]
  3. SERTRALINE [Suspect]
     Active Substance: SERTRALINE HYDROCHLORIDE
     Indication: SOCIAL PHOBIA
     Route: 048
     Dates: start: 20150817, end: 20150818
  4. PSYLLIUM HUSK FIBER CAPSULES [Concomitant]

REACTIONS (2)
  - Faecal incontinence [None]
  - Alcohol use [None]

NARRATIVE: CASE EVENT DATE: 20150818
